FAERS Safety Report 9374806 (Version 1)
Quarter: 2013Q2

REPORT INFORMATION
  Report Type: Report from Study
  Country: US (occurrence: US)
  Receive Date: 20130628
  Receipt Date: 20130628
  Transmission Date: 20140414
  Serious: Yes (Death)
  Sender: FDA-Public Use
  Company Number: US-RB-023653-09

PATIENT
  Age: 47 Year
  Sex: Female

DRUGS (1)
  1. SUBOXONE [Suspect]
     Indication: PRODUCT USED FOR UNKNOWN INDICATION
     Dosage: DOSING DETAILS NOT PROVIDED
     Route: 065

REACTIONS (3)
  - Drug withdrawal syndrome [Unknown]
  - Feeling jittery [Unknown]
  - Death [Fatal]
